FAERS Safety Report 6063913-3 (Version None)
Quarter: 2009Q1

REPORT INFORMATION
  Report Type: 
  Country: None (occurrence: None)
  Receive Date: 20090204
  Receipt Date: 20090122
  Transmission Date: 20090719
  Serious: Yes (Hospitalization, Other)
  Sender: FDA-Public Use
  Company Number: PHHY2009IE01169

PATIENT
  Sex: Male
  Weight: 192 kg

DRUGS (3)
  1. CLOZARIL [Suspect]
     Indication: SCHIZOPHRENIA
     Dosage: 6 X 100 MG
  2. ANTIPSYCHOTICS [Concomitant]
     Dosage: UNK
     Route: 048
  3. ANTIDEPRESSANTS [Concomitant]
     Dosage: UNK
     Route: 048

REACTIONS (3)
  - ACCIDENTAL EXPOSURE [None]
  - ASTHENIA [None]
  - MEDICATION ERROR [None]
